FAERS Safety Report 9876744 (Version 2)
Quarter: 2014Q1

REPORT INFORMATION
  Report Type: Other
  Country: US (occurrence: US)
  Receive Date: 20140206
  Receipt Date: 20140206
  Transmission Date: 20141002
  Serious: Yes (Other)
  Sender: FDA-Public Use
  Company Number: US-ACORDA-ACO_36221_2013

PATIENT
  Age: 58 Year
  Sex: Female

DRUGS (28)
  1. AMPYRA [Suspect]
     Indication: GAIT DISTURBANCE
     Dosage: 10 MG, BID
     Route: 065
     Dates: start: 201305, end: 201305
  2. SINGULAIR [Concomitant]
     Indication: HYPERSENSITIVITY
     Dosage: 10 MG, QD
  3. SINGULAIR [Concomitant]
     Indication: ASTHMA
  4. CLARITIN-D [Concomitant]
     Indication: HYPERSENSITIVITY
     Dosage: UNK, QD
  5. AZELASTINE HCL [Concomitant]
     Indication: HYPERSENSITIVITY
     Dosage: 0.5%, BID
  6. PROAIR [Concomitant]
     Indication: ASTHMA
     Dosage: 2 PUFFS / 4XDAY
  7. MUCINEX [Concomitant]
     Indication: HYPERSENSITIVITY
     Dosage: UNK, PRN
  8. RANITIDINE [Concomitant]
     Indication: GASTROOESOPHAGEAL REFLUX DISEASE
     Dosage: 150 MG, BID
  9. LEVSIN SL [Concomitant]
     Indication: IRRITABLE BOWEL SYNDROME
     Dosage: 0.125 MG, PRN
  10. COMPAZINE [Concomitant]
     Indication: NAUSEA
     Dosage: 5 MG, PRN
  11. DIGESTIVE ENZYMES [Concomitant]
     Indication: DYSPEPSIA
     Dosage: 2 CAPSULES BEFORE MEALS
  12. TYLENOL WITH CODEIN #4 [Concomitant]
     Indication: PAIN
     Dosage: 1 TAB/EVERY 2 HRS (5-6/DAY)
  13. TYLENOL WITH CODEIN #4 [Concomitant]
     Indication: HEADACHE
  14. MORPHINE SULFATE [Concomitant]
     Indication: PAIN
     Dosage: 30 MG, 1-1.5 TABS EVERY 2 HRS (5/6 DAY)
  15. VALIUM [Concomitant]
     Indication: MUSCLE SPASMS
     Dosage: 5 MG, QHS
  16. AMBIEN [Concomitant]
     Indication: PAIN
     Dosage: 10 MG, WHEN PAIN HIGH
  17. PHENTERMINE [Concomitant]
     Indication: FATIGUE
     Dosage: 37.5 MG, 1.5 TABLET
  18. HERBAL EXTRACT NOS [Concomitant]
     Indication: RASH
     Dosage: UNK, QD
  19. HYDROCHLOROTHIAZIDE [Concomitant]
     Indication: SWELLING
     Dosage: 50 MG, PRN
  20. ENABLEX [Concomitant]
     Indication: URINARY INCONTINENCE
     Dosage: 7.5 MG, 1XDAY PRN
  21. LEVOTHYROXINE [Concomitant]
     Indication: THYROID DISORDER
     Dosage: 25 ?G, QD
  22. BIOTIN [Concomitant]
     Indication: PRODUCT USED FOR UNKNOWN INDICATION
     Dosage: 1000 MG, QD
  23. FOLIC ACID [Concomitant]
     Indication: PRODUCT USED FOR UNKNOWN INDICATION
     Dosage: 1 MG, QD
  24. VITAMIN D [Concomitant]
     Indication: PRODUCT USED FOR UNKNOWN INDICATION
     Dosage: 1000 IU, QD
  25. VITAMIN B COMPLEX [Concomitant]
     Indication: PRODUCT USED FOR UNKNOWN INDICATION
     Dosage: UNK, QD
  26. MULTIVITAMIN [Concomitant]
     Indication: PRODUCT USED FOR UNKNOWN INDICATION
     Dosage: UNK, QD
  27. CALCIUM MAGNESIUM ZINC [Concomitant]
     Indication: PRODUCT USED FOR UNKNOWN INDICATION
     Dosage: 1X/DAY
  28. BACLOFEN [Concomitant]
     Indication: MUSCLE SPASMS
     Dosage: 30 MG, TID

REACTIONS (1)
  - Hypersensitivity [Recovered/Resolved]
